FAERS Safety Report 7364300-8 (Version None)
Quarter: 2011Q1

REPORT INFORMATION
  Report Type: 
  Country: None (occurrence: None)
  Receive Date: 20110321
  Receipt Date: 20110314
  Transmission Date: 20110831
  Serious: Yes (Hospitalization)
  Sender: FDA-Public Use
  Company Number: B0706436A

PATIENT
  Sex: Female

DRUGS (7)
  1. LAMICTAL [Suspect]
     Indication: EPILEPSY
     Dosage: 50MG PER DAY
     Route: 048
     Dates: start: 20110216, end: 20110228
  2. MAGLAX [Concomitant]
     Dosage: 3G PER DAY
     Route: 048
  3. GASMOTIN [Concomitant]
     Dosage: 15MG PER DAY
     Route: 048
  4. WYPAX [Concomitant]
     Dosage: 3MG PER DAY
     Route: 048
  5. TOFRANIL [Concomitant]
     Dosage: 75MG PER DAY
     Route: 048
  6. LAXOBERON [Concomitant]
     Dosage: 10MG PER DAY
     Route: 048
  7. DESYREL [Concomitant]
     Dosage: 50MG PER DAY
     Route: 048

REACTIONS (3)
  - SKIN DISORDER [None]
  - RASH [None]
  - ECZEMA [None]
